FAERS Safety Report 8367002-4 (Version None)
Quarter: 2012Q2

REPORT INFORMATION
  Report Type: 
  Country: None (occurrence: None)
  Receive Date: 20120517
  Receipt Date: 20120410
  Transmission Date: 20120825
  Serious: Yes (Hospitalization, Other)
  Sender: FDA-Public Use
  Company Number: DE-ROCHE-1046149

PATIENT
  Age: 67 Year
  Sex: Male

DRUGS (4)
  1. BENDAMUSTINE HYDROCHLORIDE [Suspect]
     Indication: CHRONIC LYMPHOCYTIC LEUKAEMIA
     Route: 042
     Dates: start: 20110221, end: 20110405
  2. BENDAMUSTINE HYDROCHLORIDE [Suspect]
     Indication: NON-HODGKIN'S LYMPHOMA
  3. MABTHERA [Suspect]
     Indication: NON-HODGKIN'S LYMPHOMA
  4. MABTHERA [Suspect]
     Indication: CHRONIC LYMPHOCYTIC LEUKAEMIA
     Route: 042
     Dates: start: 20110221, end: 20110427

REACTIONS (2)
  - PULMONARY MYCOSIS [None]
  - LUNG INFILTRATION [None]
